FAERS Safety Report 4808896-6 (Version None)
Quarter: 2005Q4

REPORT INFORMATION
  Report Type: 
  Country: None (occurrence: None)
  Receive Date: 20051021
  Receipt Date: 20021104
  Transmission Date: 20060501
  Serious: No
  Sender: FDA-Public Use
  Company Number: DE_021110012

PATIENT
  Age: 24 Year
  Sex: Male

DRUGS (1)
  1. ZYPREXA [Suspect]
     Indication: PSYCHOTIC DISORDER
     Dosage: 15 MG/DAY
     Dates: start: 20021031

REACTIONS (2)
  - LEUKOCYTOSIS [None]
  - LYMPHOCYTE PERCENTAGE DECREASED [None]
